FAERS Safety Report 13042210 (Version 1)
Quarter: 2016Q4

REPORT INFORMATION
  Report Type: Spontaneous
  Country: US (occurrence: US)
  Receive Date: 20161219
  Receipt Date: 20161219
  Transmission Date: 20170207
  Serious: No
  Sender: FDA-Public Use
  Company Number: US-PFIZER INC-2016587591

PATIENT
  Sex: Male

DRUGS (1)
  1. XELJANZ [Suspect]
     Active Substance: TOFACITINIB CITRATE
     Dosage: UNK MG, UNK

REACTIONS (7)
  - Oedema peripheral [Unknown]
  - Arthralgia [Unknown]
  - Back pain [Unknown]
  - Breath sounds abnormal [Unknown]
  - Hypokinesia [Unknown]
  - Dyspnoea [Unknown]
  - Rales [Unknown]
